FAERS Safety Report 12397823 (Version 1)
Quarter: 2016Q2

REPORT INFORMATION
  Report Type: Spontaneous
  Country: US (occurrence: US)
  Receive Date: 20160524
  Receipt Date: 20160524
  Transmission Date: 20160815
  Serious: Yes (Disabling)
  Sender: FDA-Public Use
  Company Number: US-NOVOPROD-492658

PATIENT
  Age: 70 Year
  Sex: Female

DRUGS (2)
  1. LEVEMIR [Suspect]
     Active Substance: INSULIN DETEMIR
     Indication: TYPE 2 DIABETES MELLITUS
     Dosage: 30 U, QD
     Route: 058
  2. NOVOLOG [Suspect]
     Active Substance: INSULIN ASPART
     Indication: TYPE 2 DIABETES MELLITUS
     Dosage: 40 U, QD (30 UNITS WITH MEALS AND 10 UNITS TO BOLUS IN THE AM)
     Route: 058

REACTIONS (4)
  - Carpal tunnel syndrome [Unknown]
  - Nerve compression [Unknown]
  - Arthritis [Unknown]
  - Periarthritis [Unknown]
